FAERS Safety Report 17459848 (Version 2)
Quarter: 2020Q1

REPORT INFORMATION
  Report Type: Report from Study
  Country: US (occurrence: US)
  Receive Date: 20200225
  Receipt Date: 20200313
  Transmission Date: 20200409
  Serious: Yes (Death, Hospitalization)
  Sender: FDA-Public Use
  Company Number: US-EXELIXIS-XL18420026622

PATIENT

DRUGS (2)
  1. XL184 [Suspect]
     Active Substance: CABOZANTINIB
     Indication: ADENOCARCINOMA GASTRIC
     Dosage: 40 MG, QD
     Route: 048
     Dates: start: 20191024, end: 20200126
  2. DURVALUMAB. [Suspect]
     Active Substance: DURVALUMAB
     Indication: ADENOCARCINOMA GASTRIC
     Dosage: 1500 MG, Q28 D
     Route: 042
     Dates: start: 20191024, end: 20191219

REACTIONS (4)
  - Embolism [Unknown]
  - Malignant pleural effusion [Recovering/Resolving]
  - Respiratory tract infection viral [Recovering/Resolving]
  - Malignant neoplasm progression [Fatal]

NARRATIVE: CASE EVENT DATE: 20200102
